FAERS Safety Report 23382373 (Version 1)
Quarter: 2024Q1

REPORT INFORMATION
  Report Type: Spontaneous
  Country: US (occurrence: US)
  Receive Date: 20240109
  Receipt Date: 20240109
  Transmission Date: 20240409
  Serious: No
  Sender: FDA-Public Use
  Company Number: US-SIGMAPHARM LABORATORIES, LLC-2023SIG00067

PATIENT
  Age: 66 Year
  Sex: Female
  Weight: 113.4 kg

DRUGS (4)
  1. LIOTHYRONINE SODIUM [Suspect]
     Active Substance: LIOTHYRONINE SODIUM
     Indication: Thyroid hormone replacement therapy
     Dosage: 5 MCG, 1X/DAY IN THE MORNING
     Dates: start: 20231110, end: 20231115
  2. LIOTHYRONINE SODIUM [Suspect]
     Active Substance: LIOTHYRONINE SODIUM
     Dosage: 5 MCG, 2X/DAY
     Dates: start: 20231116
  3. T4- TIROSINT [Concomitant]
     Dosage: 75 UNK, 1X/DAY
  4. VITAMINS NOS [Concomitant]
     Active Substance: VITAMINS
     Dosage: TAKEN 4 HOURS AFTER HER THYROID MEDICATION

REACTIONS (3)
  - Arthralgia [Not Recovered/Not Resolved]
  - Fatigue [Recovering/Resolving]
  - Abdominal distension [Not Recovered/Not Resolved]

NARRATIVE: CASE EVENT DATE: 20231101
